FAERS Safety Report 9752142 (Version 1)
Quarter: 2013Q4

REPORT INFORMATION
  Report Type: Spontaneous
  Country: US (occurrence: None)
  Receive Date: 20131211
  Receipt Date: 20131211
  Transmission Date: 20140711
  Serious: No
  Sender: FDA-Public Use
  Company Number: None

PATIENT
  Age: 24 Year
  Sex: Male
  Weight: 70 kg

DRUGS (1)
  1. SIMEPREVIR [Suspect]

REACTIONS (4)
  - Pyrexia [None]
  - Myalgia [None]
  - Dysuria [None]
  - Viral infection [None]
